FAERS Safety Report 6141926-0 (Version None)
Quarter: 2009Q2

REPORT INFORMATION
  Report Type: 
  Country: None (occurrence: None)
  Receive Date: 20090402
  Receipt Date: 20090318
  Transmission Date: 20091009
  Serious: Yes (Death, Other)
  Sender: FDA-Public Use
  Company Number: US-GENENTECH-279541

PATIENT

DRUGS (3)
  1. AVASTIN [Suspect]
     Indication: GLIOMA
     Dosage: 10 MG/KG, UNK
     Route: 042
  2. IRINOTECAN HCL [Suspect]
     Indication: GLIOMA
     Dosage: 125 MG/M2, UNK
     Route: 042
  3. CARBOPLATIN [Suspect]
     Indication: GLIOMA
     Dosage: UNK
     Route: 065

REACTIONS (3)
  - GLIOMA [None]
  - HAEMORRHAGE INTRACRANIAL [None]
  - LARGE INTESTINE PERFORATION [None]
